FAERS Safety Report 10035968 (Version 2)
Quarter: 2014Q2

REPORT INFORMATION
  Report Type: Spontaneous
  Country: GB (occurrence: GB)
  Receive Date: 20140325
  Receipt Date: 20140401
  Transmission Date: 20141212
  Serious: Yes (Death, Other)
  Sender: FDA-Public Use
  Company Number: GB-PFIZER INC-2014081421

PATIENT
  Age: 45 Year
  Sex: Female

DRUGS (24)
  1. GABAPENTIN [Suspect]
     Dosage: 400 MG, 3X/DAY
     Route: 065
  2. CITALOPRAM [Interacting]
     Indication: ANTIDEPRESSANT THERAPY
     Dosage: 40 MG, DAILY
     Route: 048
  3. DIAZEPAM [Interacting]
     Dosage: 10 MG, UNK
     Route: 065
  4. OXYCONTIN [Interacting]
     Indication: PAIN
     Dosage: 60 MG, BID
     Route: 048
  5. OXYCONTIN [Interacting]
     Dosage: 120 MG, BID
     Route: 048
  6. OXYNORM [Interacting]
     Dosage: 20 ML WHEN REQUIRED 1-2 HOURLY
     Route: 048
  7. AMITRIPTYLINE [Concomitant]
     Dosage: 50 MG, BID
  8. AZATHIOPRINE [Concomitant]
     Dosage: 75 (50+25)MG, DAILY
  9. CALCICHEW-D3 [Concomitant]
     Dosage: 1 TABLET, TWICE PER DAY
  10. CHLORPHENAMINE [Concomitant]
     Dosage: 4 MG, 4 X PER DAY
  11. CLENIL MODULITE [Concomitant]
     Dosage: 50 UG, UNK
     Route: 055
  12. COLCHICINE [Concomitant]
     Dosage: 750 UG, DAILY
  13. LOPERAMIDE [Concomitant]
     Dosage: 8 MG, 4X/DAY
  14. OMEPRAZOLE [Concomitant]
     Dosage: 40 MG, DAILY
  15. ONDANSETRON [Concomitant]
     Dosage: 8 MG, TID
  16. OPTIVE [Concomitant]
     Dosage: 1 GTT, DAILY 0.5%
  17. OXYBUTYNIN [Concomitant]
     Dosage: 5 MG, UNK
  18. PARACETAMOL [Concomitant]
     Dosage: 1000 MG, UP TO 4X/DAY
  19. PREDNISONE [Concomitant]
     Dosage: 5 MG, BID
  20. QUININE SULFATE [Concomitant]
     Dosage: 200 MG, 1X/DAY AT NIGHT
  21. REGURIN [Concomitant]
     Dosage: 60 MG, DAILY
  22. VENTOLIN [Concomitant]
     Dosage: 100 MCG, TWICE PER DAY AS NEEDED
     Route: 055
  23. XARELTO [Concomitant]
     Dosage: 20 MG, TID
  24. ZOPICLONE [Concomitant]
     Dosage: 7.5 MG, AT NIGHT

REACTIONS (6)
  - Overdose [Fatal]
  - Accidental overdose [Fatal]
  - Respiratory failure [Fatal]
  - Drug interaction [Unknown]
  - Gastrointestinal stoma complication [Unknown]
  - Wound haemorrhage [Unknown]
